FAERS Safety Report 5533485-8 (Version None)
Quarter: 2007Q4

REPORT INFORMATION
  Report Type: 
  Country: None (occurrence: None)
  Receive Date: 20071120
  Receipt Date: 20070731
  Transmission Date: 20080405
  Serious: No
  Sender: FDA-Public Use
  Company Number: WAES 0705USA05451

PATIENT
  Age: 63 Year
  Sex: Male

DRUGS (7)
  1. JANUVIA [Suspect]
     Indication: TYPE 2 DIABETES MELLITUS
     Dosage: 100 MG/DAILY/PO ; 50 MG/DAILY/PO
     Route: 048
     Dates: start: 20070404, end: 20070501
  2. JANUVIA [Suspect]
     Indication: TYPE 2 DIABETES MELLITUS
     Dosage: 100 MG/DAILY/PO ; 50 MG/DAILY/PO
     Route: 048
     Dates: start: 20070501
  3. ACTOS [Concomitant]
  4. PLENDIL [Concomitant]
  5. HYDROCHLOROTHIAZIDE + LISINOPR [Concomitant]
  6. INDOMETHACIN [Concomitant]
  7. METFORMIN HCL [Concomitant]

REACTIONS (4)
  - BLOOD CREATININE INCREASED [None]
  - FLUID RETENTION [None]
  - OEDEMA PERIPHERAL [None]
  - WEIGHT INCREASED [None]
